FAERS Safety Report 21098284 (Version 1)
Quarter: 2022Q3

REPORT INFORMATION
  Report Type: Other
  Country: ES (occurrence: None)
  Receive Date: 20220719
  Receipt Date: 20220719
  Transmission Date: 20221027
  Serious: Yes (Other)
  Sender: FDA-Public Use
  Company Number: ES-ROCHE-3142254

PATIENT
  Age: 83 Year
  Sex: Female

DRUGS (1)
  1. CAPECITABINE [Suspect]
     Active Substance: CAPECITABINE
     Indication: Rectal adenocarcinoma
     Route: 048

REACTIONS (1)
  - Subacute cutaneous lupus erythematosus [Recovered/Resolved]
